FAERS Safety Report 12126051 (Version 2)
Quarter: 2016Q1

REPORT INFORMATION
  Report Type: Report from Study
  Country: US (occurrence: US)
  Receive Date: 20160229
  Receipt Date: 20160324
  Transmission Date: 20160526
  Serious: Yes (Other)
  Sender: FDA-Public Use
  Company Number: US-GILEAD-2016-0200546

PATIENT
  Age: 67 Year
  Sex: Female

DRUGS (1)
  1. AMBRISENTAN [Suspect]
     Active Substance: AMBRISENTAN
     Indication: PRODUCT USED FOR UNKNOWN INDICATION
     Dosage: 5 MG, UNK
     Route: 065

REACTIONS (11)
  - Choking [Unknown]
  - Bronchitis [Unknown]
  - Scleroderma [Unknown]
  - Regurgitation [Unknown]
  - Irritable bowel syndrome [Unknown]
  - Cyanosis [Unknown]
  - Cough [Not Recovered/Not Resolved]
  - Diarrhoea [Unknown]
  - Sinusitis [Not Recovered/Not Resolved]
  - Dysphagia [Unknown]
  - Constipation [Unknown]

NARRATIVE: CASE EVENT DATE: 201602
